FAERS Safety Report 7518039 (Version 21)
Quarter: 2014Q1

REPORT INFORMATION
  Report Type: Report from Study
  Country: CA (occurrence: CA)
  Receive Date: 20100802
  Receipt Date: 20140328
  Transmission Date: 20141002
  Serious: Yes (Hospitalization, Other)
  Sender: FDA-Public Use
  Company Number: PHHY2010CA47978

PATIENT
  Age: 73 Year
  Sex: Female

DRUGS (10)
  1. SANDOSTATIN LAR [Suspect]
     Indication: CARCINOID TUMOUR
     Dosage: 20 MG, EVERY 4 WEEKS
     Route: 030
     Dates: start: 20100705
  2. SANDOSTATIN LAR [Suspect]
     Indication: METASTASES TO LIVER
     Dosage: 20 MG, EVERY 4 WEEKS
     Route: 030
     Dates: start: 20101029
  3. SANDOSTATIN LAR [Suspect]
     Dosage: 30 MG, EVERY 4 WEEKS
     Route: 030
  4. SANDOSTATIN LAR [Suspect]
     Dosage: 30 MG, EVERY 2 WEEKS
     Route: 030
  5. SANDOSTATIN LAR [Suspect]
     Dosage: 30 MG, EVERY 4 WEEKS
     Route: 030
  6. WARFARIN [Concomitant]
     Indication: ATRIAL FIBRILLATION
     Dosage: UNK UKN, UNK
  7. COUMADIN [Concomitant]
     Dosage: 5 MG, UNK (5 MG 2 DAYS AND 2.5 MG 5 DAYS)
  8. COUMADIN [Concomitant]
     Dosage: 2.5 MG QD
  9. OXYCONTIN [Concomitant]
     Dosage: UNK UKN, UNK
  10. ANTIHYPERTENSIVE DRUGS [Concomitant]
     Dosage: UNK UKN, UNK

REACTIONS (34)
  - Injection site mass [Not Recovered/Not Resolved]
  - Injection site discolouration [Unknown]
  - Skin discolouration [Unknown]
  - Syncope [Unknown]
  - Atrial fibrillation [Unknown]
  - Dyspnoea [Unknown]
  - Injection site pain [Not Recovered/Not Resolved]
  - Injury associated with device [Unknown]
  - Cholelithiasis [Unknown]
  - Fall [Unknown]
  - Cataract [Unknown]
  - Hypertension [Unknown]
  - Haemorrhage [Recovered/Resolved]
  - Toxicity to various agents [Recovered/Resolved]
  - International normalised ratio increased [Unknown]
  - Contusion [Not Recovered/Not Resolved]
  - 5-hydroxyindolacetic acid increased [Unknown]
  - Hot flush [Not Recovered/Not Resolved]
  - Feeling hot [Unknown]
  - Influenza [Unknown]
  - Pyrexia [Unknown]
  - Headache [Unknown]
  - Chest pain [Recovered/Resolved]
  - Pain [Unknown]
  - Gallbladder disorder [Unknown]
  - Abdominal pain [Unknown]
  - Malaise [Unknown]
  - Heart rate increased [Unknown]
  - Nausea [Unknown]
  - Vomiting [Unknown]
  - Constipation [Unknown]
  - Diarrhoea [Unknown]
  - Abdominal pain lower [Unknown]
  - Heart rate decreased [Unknown]
